FAERS Safety Report 9536418 (Version 1)
Quarter: 2013Q3

REPORT INFORMATION
  Report Type: Spontaneous
  Country: US (occurrence: None)
  Receive Date: 20130917
  Receipt Date: 20130917
  Transmission Date: 20140515
  Serious: Yes (Hospitalization)
  Sender: FDA-Public Use
  Company Number: None

PATIENT
  Age: 49 Year
  Sex: Female
  Weight: 105.69 kg

DRUGS (1)
  1. HCG [Suspect]
     Dosage: 1 INJECTION ONCE DAILY GIVEN INTO/UNDER THE SKIN
     Dates: start: 20120813, end: 20120816

REACTIONS (2)
  - Malaise [None]
  - Appendicectomy [None]
